FAERS Safety Report 21023197 (Version 3)
Quarter: 2022Q3

REPORT INFORMATION
  Report Type: Report from Study
  Country: US (occurrence: None)
  Receive Date: 20220629
  Receipt Date: 20220713
  Transmission Date: 20221026
  Serious: Yes (Death, Hospitalization)
  Sender: FDA-Public Use
  Company Number: US-ROCHE-3126451

PATIENT
  Age: 67 Year
  Sex: Male
  Weight: 51.8 kg

DRUGS (9)
  1. VENETOCLAX [Suspect]
     Active Substance: VENETOCLAX
     Indication: Diffuse large B-cell lymphoma
     Dosage: ON 18/JUN/2022, RECEIVED MOST RECENT DOSE OF 800 MG VENETOCLAX PRIOR TO AE AND SAE
     Route: 048
     Dates: start: 20220505
  2. POLATUZUMAB VEDOTIN [Suspect]
     Active Substance: POLATUZUMAB VEDOTIN
     Indication: Diffuse large B-cell lymphoma
     Dosage: ON 13/JUN/2022, RECEIVED MOST RECENT DOSE OF 93.2 MG PRIOR TO AE AND SAE
     Route: 042
     Dates: start: 20220502
  3. RITUXIMAB [Suspect]
     Active Substance: RITUXIMAB
     Indication: Diffuse large B-cell lymphoma
     Dosage: ON 13/JUN/2022, RECEIVED MOST RECENT DOSE OF 375 MG RITUXIMAB PRIOR TO AE AND SAE
     Route: 041
     Dates: start: 20220502
  4. PREDNISONE [Suspect]
     Active Substance: PREDNISONE
     Indication: Diffuse large B-cell lymphoma
     Dosage: ON 18/JUN/2022, RECEIVED MOST RECENT DOSE OF 100 MG PREDNISONE PRIOR TO AE AND SAE
     Route: 048
     Dates: start: 20220502
  5. CYCLOPHOSPHAMIDE [Suspect]
     Active Substance: CYCLOPHOSPHAMIDE
     Indication: Diffuse large B-cell lymphoma
     Dosage: ON 13/JUN/2022, RECEIVED MOST RECENT DOSE OF 1170 MG CYCLOPHOSPHAMIDE PRIOR TO AE AND SAE
     Route: 042
     Dates: start: 20220502
  6. DOXORUBICIN [Suspect]
     Active Substance: DOXORUBICIN
     Indication: Diffuse large B-cell lymphoma
     Route: 042
     Dates: start: 20220502
  7. METOPROLOL [Concomitant]
     Active Substance: METOPROLOL
     Indication: Hypertension
     Route: 048
     Dates: start: 20220128
  8. ONDANSETRON [Concomitant]
     Active Substance: ONDANSETRON
     Indication: Prophylaxis of nausea and vomiting
     Route: 048
     Dates: start: 20220419
  9. METOCLOPRAMIDE [Concomitant]
     Active Substance: METOCLOPRAMIDE
     Indication: Prophylaxis of nausea and vomiting
     Route: 048
     Dates: start: 20220419

REACTIONS (1)
  - Depressed level of consciousness [Fatal]

NARRATIVE: CASE EVENT DATE: 20220624
